FAERS Safety Report 12409177 (Version 1)
Quarter: 2016Q2

REPORT INFORMATION
  Report Type: Spontaneous
  Country: US (occurrence: US)
  Receive Date: 20160526
  Receipt Date: 20160526
  Transmission Date: 20160815
  Serious: Yes (Other)
  Sender: FDA-Public Use
  Company Number: US-WATSON-2016-10834

PATIENT
  Age: 79 Year
  Sex: Male

DRUGS (1)
  1. MORPHINE ER (AELLC) [Suspect]
     Active Substance: MORPHINE
     Indication: PRODUCT USED FOR UNKNOWN INDICATION
     Dosage: ONE TABLET, EVERY 12 HOURS
     Route: 048

REACTIONS (3)
  - Confusional state [Unknown]
  - Lethargy [Unknown]
  - Overdose [Unknown]

NARRATIVE: CASE EVENT DATE: 20121016
